FAERS Safety Report 9705859 (Version 2)
Quarter: 2013Q4

REPORT INFORMATION
  Report Type: Spontaneous
  Country: US (occurrence: US)
  Receive Date: 20131122
  Receipt Date: 20131122
  Transmission Date: 20140711
  Serious: No
  Sender: FDA-Public Use
  Company Number: US-GILEAD-2008-0017031

PATIENT
  Sex: Male
  Weight: 149.68 kg

DRUGS (16)
  1. LETAIRIS [Suspect]
     Indication: PULMONARY ARTERIAL HYPERTENSION
     Route: 048
     Dates: start: 20080605
  2. LASIX [Concomitant]
     Route: 048
  3. LISINOPRIL [Concomitant]
     Route: 048
  4. ZOCOR [Concomitant]
     Route: 048
  5. COREG [Concomitant]
     Route: 048
  6. ZOLOFT [Concomitant]
     Route: 048
  7. ZYRTEC [Concomitant]
     Route: 048
  8. SYNTHROID [Concomitant]
     Route: 048
  9. LANTUS [Concomitant]
     Route: 058
  10. LORAZEPAM [Concomitant]
     Route: 048
  11. AMIODARONE [Concomitant]
     Route: 048
  12. ECOTRIN [Concomitant]
     Route: 048
  13. NOVOLOG [Concomitant]
     Route: 058
  14. NITROGLYCERIN [Concomitant]
     Route: 060
  15. PRILOSEC [Concomitant]
     Route: 048
  16. POTASSIUM [Concomitant]
     Route: 048

REACTIONS (1)
  - Weight increased [Unknown]
